FAERS Safety Report 5726153-0 (Version None)
Quarter: 2008Q2

REPORT INFORMATION
  Report Type: 
  Country: None (occurrence: None)
  Receive Date: 20080502
  Receipt Date: 20080429
  Transmission Date: 20081010
  Serious: Yes (Other)
  Sender: FDA-Public Use
  Company Number: GB-BAYER-200810758BNE

PATIENT
  Age: 30 Year
  Sex: Female
  Weight: 25 kg

DRUGS (6)
  1. MOXIFLOXACIN HCL [Suspect]
     Indication: TUBERCULOSIS
     Dosage: TOTAL DAILY DOSE: 400 MG
     Route: 048
     Dates: start: 20080207
  2. CHLORPHENIRAMINE MALEATE [Concomitant]
     Indication: RASH
     Dosage: TOTAL DAILY DOSE: 12 MG
     Route: 048
     Dates: start: 20080207
  3. PYRIDOXINE [Concomitant]
  4. RIFATER [Concomitant]
  5. RIFINAH [Concomitant]
     Indication: TUBERCULOSIS
     Route: 048
     Dates: start: 20080207
  6. IRON SUPPLEMENT [Concomitant]

REACTIONS (1)
  - STILLBIRTH [None]
